FAERS Safety Report 7347069-2 (Version None)
Quarter: 2011Q1

REPORT INFORMATION
  Report Type: 
  Country: None (occurrence: None)
  Receive Date: 20110311
  Receipt Date: 20110308
  Transmission Date: 20110831
  Serious: No
  Sender: FDA-Public Use
  Company Number: US-TEVA-270532USA

PATIENT
  Sex: Female
  Weight: 63.56 kg

DRUGS (2)
  1. PLAN B ONE-STEP [Suspect]
     Indication: POST COITAL CONTRACEPTION
     Route: 048
     Dates: start: 20110215, end: 20110215
  2. CELEBREX [Concomitant]
     Indication: PAIN

REACTIONS (3)
  - MENSTRUATION DELAYED [None]
  - MENSTRUATION IRREGULAR [None]
  - CERVICAL DISCHARGE [None]
